FAERS Safety Report 9558994 (Version 6)
Quarter: 2014Q1

REPORT INFORMATION
  Report Type: Spontaneous
  Country: US (occurrence: US)
  Receive Date: 20130927
  Receipt Date: 20140325
  Transmission Date: 20141002
  Serious: Yes (Hospitalization, Other)
  Sender: FDA-Public Use
  Company Number: US-BIOGENIDEC-2013BI089382

PATIENT
  Age: 60 Year
  Sex: Female

DRUGS (15)
  1. TYSABRI [Suspect]
     Indication: MULTIPLE SCLEROSIS
     Route: 042
     Dates: start: 20081202, end: 20130813
  2. VYTORIN [Concomitant]
     Indication: ESSENTIAL HYPERTENSION
  3. DYAZIDE [Concomitant]
     Indication: ESSENTIAL HYPERTENSION
  4. ATENOLOL [Concomitant]
     Indication: ESSENTIAL HYPERTENSION
  5. XANAX [Concomitant]
     Indication: ANXIETY
  6. VALIUM [Concomitant]
     Indication: ANXIETY
  7. SYNTHROID [Concomitant]
     Indication: HYPOTHYROIDISM
  8. TOPAMAX [Concomitant]
     Indication: MIGRAINE
  9. IMMITREX [Concomitant]
     Indication: MIGRAINE
  10. NITROFURANTOIN [Concomitant]
     Indication: URINARY INCONTINENCE
  11. NITROFURANTOIN [Concomitant]
     Indication: URINARY TRACT INFECTION
  12. VESICARE [Concomitant]
     Indication: URINARY INCONTINENCE
  13. VESICARE [Concomitant]
     Indication: URINARY TRACT INFECTION
  14. SENNA [Concomitant]
     Indication: CONSTIPATION
  15. COLACE [Concomitant]
     Indication: CONSTIPATION

REACTIONS (3)
  - Progressive multifocal leukoencephalopathy [Recovered/Resolved with Sequelae]
  - Multiple sclerosis relapse [Not Recovered/Not Resolved]
  - Immune reconstitution inflammatory syndrome [Unknown]
